FAERS Safety Report 17984994 (Version 4)
Quarter: 2020Q3

REPORT INFORMATION
  Report Type: Spontaneous
  Country: JP (occurrence: JP)
  Receive Date: 20200706
  Receipt Date: 20200724
  Transmission Date: 20201103
  Serious: Yes (Hospitalization, Other)
  Sender: FDA-Public Use
  Company Number: JP-PFIZER INC-2020253358

PATIENT
  Age: 77 Year
  Sex: Female

DRUGS (12)
  1. ROSUVASTATIN SAWAI [Suspect]
     Active Substance: ROSUVASTATIN CALCIUM
     Indication: BLOOD CHOLESTEROL INCREASED
     Dosage: UNK, TWICE A WEEK
     Route: 048
  2. BAYASPIRIN [Suspect]
     Active Substance: ASPIRIN
     Indication: CEREBROVASCULAR ACCIDENT PROPHYLAXIS
     Dosage: 2 DF, DAILY
     Route: 048
  3. BAYASPIRIN [Suspect]
     Active Substance: ASPIRIN
     Dosage: 1 DF, DAILY
     Route: 048
  4. RIMATIL [Suspect]
     Active Substance: BUCILLAMINE
     Dosage: UNK
     Route: 048
  5. SELBEX [Suspect]
     Active Substance: TEPRENONE
     Indication: GASTRIC DISORDER
     Dosage: UNK
     Route: 048
  6. BLOPRESS [Suspect]
     Active Substance: CANDESARTAN CILEXETIL
     Dosage: UNK
     Route: 048
  7. MUCOSTA [Suspect]
     Active Substance: REBAMIPIDE
     Indication: GASTRIC DISORDER
     Dosage: UNK
     Route: 048
  8. CILOSTAZOL. [Suspect]
     Active Substance: CILOSTAZOL
     Indication: CEREBROVASCULAR ACCIDENT PROPHYLAXIS
     Dosage: UNK
     Route: 048
  9. RIZE [Suspect]
     Active Substance: CLOTIAZEPAM
     Dosage: UNK
     Route: 048
  10. DEPAS [ETIZOLAM] [Suspect]
     Active Substance: ETIZOLAM
     Dosage: UNK
     Route: 048
  11. SOLANAX [Suspect]
     Active Substance: ALPRAZOLAM
     Dosage: UNK, 1X/DAY, AT NIGHT
     Route: 048
  12. EXCELASE [Suspect]
     Active Substance: PANCRELIPASE
     Dosage: UNK
     Route: 048

REACTIONS (22)
  - Sudden hearing loss [Unknown]
  - Oedema peripheral [Unknown]
  - Constipation [Unknown]
  - Limb injury [Unknown]
  - Tinnitus [Unknown]
  - Blood cholesterol increased [Recovering/Resolving]
  - Insomnia [Unknown]
  - Peripheral vascular disorder [Unknown]
  - Weight decreased [Unknown]
  - Malaise [Unknown]
  - Feeling abnormal [Unknown]
  - Musculoskeletal stiffness [Unknown]
  - Cerebrovascular stenosis [Unknown]
  - Skin wrinkling [Unknown]
  - Stress [Unknown]
  - Headache [Unknown]
  - Haemorrhage [Unknown]
  - Eye disorder [Unknown]
  - Hypoaesthesia [Unknown]
  - Muscular weakness [Unknown]
  - Dizziness [Unknown]
  - Fall [Unknown]
